FAERS Safety Report 23457791 (Version 1)
Quarter: 2024Q1

REPORT INFORMATION
  Report Type: Report from Study
  Country: US (occurrence: None)
  Receive Date: 20240130
  Receipt Date: 20240130
  Transmission Date: 20240409
  Serious: Yes (Hospitalization)
  Sender: FDA-Public Use
  Company Number: 2024A014732

PATIENT
  Sex: Female

DRUGS (1)
  1. SYMBICORT [Suspect]
     Active Substance: BUDESONIDE\FORMOTEROL FUMARATE DIHYDRATE
     Dosage: UNKNOWN
     Route: 055

REACTIONS (11)
  - Pain [Unknown]
  - Motor dysfunction [Unknown]
  - Loss of control of legs [Unknown]
  - Dysstasia [Unknown]
  - Mobility decreased [Unknown]
  - Spinal stenosis [Unknown]
  - Sciatica [Unknown]
  - Lumbar spinal stenosis [Unknown]
  - Back pain [Unknown]
  - Back pain [Unknown]
  - Dyspnoea [Unknown]
